FAERS Safety Report 4822097-7 (Version None)
Quarter: 2005Q4

REPORT INFORMATION
  Report Type: 
  Country: None (occurrence: None)
  Receive Date: 20051103
  Receipt Date: 20051019
  Transmission Date: 20060501
  Serious: No
  Sender: FDA-Public Use
  Company Number: JP_050907496

PATIENT
  Age: 37 Year
  Sex: Female

DRUGS (1)
  1. HUMALOG [Suspect]
     Indication: DIABETES MELLITUS INSULIN-DEPENDENT
     Dosage: 40 U DAY
     Dates: start: 20030201

REACTIONS (7)
  - CAESAREAN SECTION [None]
  - DRUG EXPOSURE DURING PREGNANCY [None]
  - GLYCOSYLATED HAEMOGLOBIN INCREASED [None]
  - NAUSEA [None]
  - PREMATURE LABOUR [None]
  - UNINTENDED PREGNANCY [None]
  - VOMITING [None]
